FAERS Safety Report 13167147 (Version 1)
Quarter: 2017Q1

REPORT INFORMATION
  Report Type: Spontaneous
  Country: BR (occurrence: BR)
  Receive Date: 20170131
  Receipt Date: 20170131
  Transmission Date: 20170428
  Serious: Yes (Other)
  Sender: FDA-Public Use
  Company Number: BR-PFIZER INC-2017033297

PATIENT
  Age: 86 Year
  Sex: Female

DRUGS (6)
  1. CATAFLAM [Concomitant]
     Active Substance: DICLOFENAC POTASSIUM
     Indication: PAIN IN EXTREMITY
     Dosage: UNK
  2. TARGIFOR [Concomitant]
     Indication: MUSCLE DISORDER
     Dosage: UNK
     Route: 048
  3. TORSILAX [Concomitant]
     Active Substance: ACETAMINOPHEN\CAFFEINE\CARISOPRODOL\DICLOFENAC
     Indication: BACK PAIN
     Dosage: WHEN FEELING PAIN
     Route: 048
  4. DORFLEX [Concomitant]
     Active Substance: CAFFEINE\DIPYRONE\ORPHENADRINE
     Dosage: WHEN FEELING PAIN
     Route: 048
  5. LIPITOR [Suspect]
     Active Substance: ATORVASTATIN CALCIUM
     Indication: BLOOD CHOLESTEROL
     Dosage: 1 TABLET OF 20 MG, AT NIGHT
     Route: 048
  6. DORIL [Concomitant]
     Indication: HEADACHE
     Dosage: UNK
     Route: 048

REACTIONS (4)
  - Bone disorder [Unknown]
  - Limb injury [Unknown]
  - Memory impairment [Unknown]
  - Fall [Unknown]
